FAERS Safety Report 20888414 (Version 1)
Quarter: 2022Q2

REPORT INFORMATION
  Report Type: Spontaneous
  Country: PT (occurrence: PT)
  Receive Date: 20220529
  Receipt Date: 20220529
  Transmission Date: 20220721
  Serious: Yes (Life-Threatening, Hospitalization, Other)
  Sender: FDA-Public Use
  Company Number: PT-EMA-DD-20220518-6644853-122721

PATIENT
  Age: 75 Year
  Sex: Female

DRUGS (7)
  1. CLOPIDOGREL BISULFATE [Suspect]
     Active Substance: CLOPIDOGREL BISULFATE
     Indication: Antiplatelet therapy
  2. CLOPIDOGREL BISULFATE [Suspect]
     Active Substance: CLOPIDOGREL BISULFATE
     Indication: Atrial fibrillation
  3. TINZAPARIN SODIUM [Suspect]
     Active Substance: TINZAPARIN SODIUM
     Indication: Anticoagulant therapy
  4. OLMESARTAN [Concomitant]
     Active Substance: OLMESARTAN
  5. AMIODARONE [Concomitant]
     Active Substance: AMIODARONE
  6. LERCANIDIPINE [Concomitant]
     Active Substance: LERCANIDIPINE
  7. HYDROXYUREA [Concomitant]
     Active Substance: HYDROXYUREA

REACTIONS (11)
  - Localised oedema [Recovered/Resolved]
  - Pharyngeal haematoma [Recovered/Resolved]
  - Tracheal deviation [Recovered/Resolved]
  - Respiratory distress [Recovered/Resolved]
  - Dysphagia [Recovered/Resolved]
  - Laryngeal oedema [Recovered/Resolved]
  - Haemorrhagic thyroid cyst [Recovered/Resolved]
  - Haemoglobin decreased [Recovered/Resolved]
  - Activated partial thromboplastin time prolonged [Recovered/Resolved]
  - Thyroid haemorrhage [Recovered/Resolved]
  - Neck mass [Recovered/Resolved]
